FAERS Safety Report 9433205 (Version 2)
Quarter: 2013Q4

REPORT INFORMATION
  Report Type: Spontaneous
  Country: GB (occurrence: GB)
  Receive Date: 20130731
  Receipt Date: 20131104
  Transmission Date: 20140711
  Serious: Yes (Other)
  Sender: FDA-Public Use
  Company Number: PHHY2013GB078703

PATIENT
  Age: 86 Year
  Sex: Male
  Weight: 82.5 kg

DRUGS (11)
  1. DONEPEZIL [Suspect]
     Indication: DEMENTIA
     Dosage: 10 MG, UNK
     Route: 048
     Dates: start: 20130603, end: 20130609
  2. DONEPEZIL [Suspect]
     Dosage: 10 MG, DOSE REDUCED TO 5MGS.
     Route: 048
     Dates: start: 20130603, end: 20130609
  3. ASPIRIN [Concomitant]
     Dosage: 75 MG, UNK
     Route: 048
  4. THYROXINE [Concomitant]
     Dosage: 50 UG, UNK
     Route: 048
  5. MST CONTINUS [Concomitant]
     Dosage: 20 MG MORNING, 10 MG AT NIGHT
     Route: 048
  6. MST CONTINUS [Concomitant]
     Dosage: 20MG MORNING, 10MG AT NIGHT
     Route: 048
  7. SIMVASTATIN [Concomitant]
     Dosage: 10 MG, UNK
     Route: 048
  8. NAPROSYN [Concomitant]
     Dosage: 1 DF, BID
     Route: 048
  9. DOSULEPIN [Concomitant]
     Dosage: 50 MG, AT NIGHT
     Route: 048
  10. DOSULEPIN [Concomitant]
     Dosage: AT NIGHT
     Route: 048
  11. SODIUM VALPROATE [Concomitant]
     Dosage: 200 MG, QD
     Route: 048

REACTIONS (2)
  - Nightmare [Recovered/Resolved]
  - Hallucination [Recovered/Resolved]
